FAERS Safety Report 7719201-X (Version None)
Quarter: 2011Q3

REPORT INFORMATION
  Report Type: 
  Country: None (occurrence: None)
  Receive Date: 20110830
  Receipt Date: 20110823
  Transmission Date: 20111222
  Serious: Yes (Hospitalization)
  Sender: FDA-Public Use
  Company Number: US-ELI_LILLY_AND_COMPANY-US201108007578

PATIENT
  Sex: Male

DRUGS (9)
  1. DECADRON [Concomitant]
  2. CETUXIMAB [Suspect]
     Indication: TONGUE NEOPLASM MALIGNANT STAGE UNSPECIFIED
     Dosage: 400 MG/M2, LOADING DOSE
     Route: 042
     Dates: start: 20110629, end: 20110727
  3. FOLIC ACID [Concomitant]
  4. CIPROFLOXACIN                      /00697201/ [Concomitant]
  5. PEMETREXED [Suspect]
     Indication: TONGUE NEOPLASM MALIGNANT STAGE UNSPECIFIED
     Dosage: 500 MG, DAY 1, EVERY 21 DYAS
     Route: 042
     Dates: start: 20110629, end: 20110727
  6. DOXYCLINE                          /00055701/ [Concomitant]
     Dosage: UNK
  7. AVASTIN [Suspect]
     Indication: TONGUE NEOPLASM MALIGNANT STAGE UNSPECIFIED
     Dosage: 15 MG/KG, OTHER
     Route: 042
     Dates: start: 20110629, end: 20110727
  8. CETUXIMAB [Suspect]
     Dosage: 250 MG/M2, Q WEEKLY
     Route: 042
  9. RADIATION [Suspect]
     Indication: TONGUE NEOPLASM MALIGNANT STAGE UNSPECIFIED
     Dosage: 70 G, QD M-F
     Dates: start: 20110706, end: 20110708

REACTIONS (4)
  - INFECTION [None]
  - WEIGHT DECREASED [None]
  - FATIGUE [None]
  - FEEDING TUBE COMPLICATION [None]
